FAERS Safety Report 4621895-2 (Version None)
Quarter: 2005Q1

REPORT INFORMATION
  Report Type: 
  Country: None (occurrence: None)
  Receive Date: 20050329
  Receipt Date: 20050322
  Transmission Date: 20050727
  Serious: Yes (Disabling)
  Sender: FDA-Public Use
  Company Number: US-GLAXOSMITHKLINE-A0550853A

PATIENT
  Sex: Male

DRUGS (3)
  1. COREG [Suspect]
     Route: 048
  2. LISINOPRIL [Concomitant]
  3. ASPIRIN [Concomitant]

REACTIONS (2)
  - CHILLS [None]
  - DIZZINESS [None]
